FAERS Safety Report 19472259 (Version 3)
Quarter: 2021Q4

REPORT INFORMATION
  Report Type: Report from Study
  Country: CA (occurrence: CA)
  Receive Date: 20210629
  Receipt Date: 20211018
  Transmission Date: 20220303
  Serious: Yes (Hospitalization, Other)
  Sender: FDA-Public Use
  Company Number: CA-JNJFOC-20210637402

PATIENT
  Age: 54 Year
  Sex: Male

DRUGS (1)
  1. REMICADE [Suspect]
     Active Substance: INFLIXIMAB
     Indication: Crohn^s disease
     Route: 042
     Dates: start: 20190226

REACTIONS (8)
  - Small intestinal resection [Unknown]
  - Colectomy [Unknown]
  - Abdominal pain [Unknown]
  - Post procedural infection [Unknown]
  - Stoma site extravasation [Unknown]
  - Gastrointestinal carcinoma [Recovered/Resolved]
  - Atrial fibrillation [Not Recovered/Not Resolved]
  - Enterostomy [Unknown]

NARRATIVE: CASE EVENT DATE: 20210601
